FAERS Safety Report 5873250-5 (Version None)
Quarter: 2008Q3

REPORT INFORMATION
  Report Type: 
  Country: None (occurrence: None)
  Receive Date: 20080908
  Receipt Date: 20080829
  Transmission Date: 20090109
  Serious: Yes (Other)
  Sender: FDA-Public Use
  Company Number: US-AMGEN-QUU299292

PATIENT
  Age: 86 Year
  Sex: Female

DRUGS (7)
  1. ARANESP [Suspect]
     Indication: RENAL FAILURE CHRONIC
     Dates: start: 20061206
  2. ATACAND [Concomitant]
  3. VYTORIN [Concomitant]
  4. PLAVIX [Concomitant]
  5. VITAMIN D [Concomitant]
  6. ZEMPLAR [Concomitant]
  7. HECTORAL [Concomitant]

REACTIONS (4)
  - CHILLS [None]
  - FATIGUE [None]
  - HOT FLUSH [None]
  - HYPERPARATHYROIDISM SECONDARY [None]
